FAERS Safety Report 7197878-8 (Version None)
Quarter: 2010Q4

REPORT INFORMATION
  Report Type: 
  Country: None (occurrence: None)
  Receive Date: 20101214
  Receipt Date: 20101208
  Transmission Date: 20110411
  Serious: Yes (Other)
  Sender: FDA-Public Use
  Company Number: 2010MA005063

PATIENT
  Age: 58 Year
  Sex: Female

DRUGS (6)
  1. OXYCODONE HCL [Suspect]
  2. PAREGORIC LIQUID USP (ALPHARMA) [Suspect]
  3. OXYCONTIN [Suspect]
  4. PREV MEDS [Concomitant]
  5. VALIUM [Suspect]
  6. CON MEDS [Concomitant]

REACTIONS (4)
  - BONE NEOPLASM MALIGNANT [None]
  - DYSPNOEA [None]
  - NON-CARDIAC CHEST PAIN [None]
  - PULMONARY OEDEMA [None]
